FAERS Safety Report 24747769 (Version 1)
Quarter: 2024Q4

REPORT INFORMATION
  Report Type: Spontaneous
  Country: US (occurrence: US)
  Receive Date: 20241218
  Receipt Date: 20241218
  Transmission Date: 20250114
  Serious: Yes (Other)
  Sender: COOPERSURGICAL
  Company Number: US-COOPERSURGICAL, INC.-2024CPS003934

PATIENT
  Age: 46 Year
  Sex: Female
  Weight: 62.132 kg

DRUGS (1)
  1. PARAGARD T 380A [Suspect]
     Active Substance: COPPER
     Indication: Contraception
     Dosage: UNK
     Route: 015
     Dates: start: 20091124

REACTIONS (23)
  - Uterine leiomyoma [Unknown]
  - Salpingectomy [Recovered/Resolved]
  - Uterine injury [Not Recovered/Not Resolved]
  - Neuropathy peripheral [Unknown]
  - Clavicle fracture [Unknown]
  - Ligament operation [Not Recovered/Not Resolved]
  - Device breakage [Not Recovered/Not Resolved]
  - Foreign body in reproductive tract [Not Recovered/Not Resolved]
  - Complication of device removal [Not Recovered/Not Resolved]
  - Embedded device [Not Recovered/Not Resolved]
  - Hepatic lesion [Unknown]
  - Human papilloma virus test positive [Unknown]
  - Periodic limb movement disorder [Unknown]
  - Emotional disorder [Unknown]
  - Neck pain [Unknown]
  - Pain in extremity [Unknown]
  - Arthralgia [Unknown]
  - Visual impairment [Unknown]
  - Vitamin D deficiency [Unknown]
  - Constipation [Unknown]
  - Back pain [Unknown]
  - Hypersensitivity [Unknown]
  - Abnormal uterine bleeding [Unknown]

NARRATIVE: CASE EVENT DATE: 20180401
